FAERS Safety Report 6110933-6 (Version None)
Quarter: 2009Q1

REPORT INFORMATION
  Report Type: 
  Country: None (occurrence: None)
  Receive Date: 20090311
  Receipt Date: 20090304
  Transmission Date: 20090719
  Serious: Yes (Hospitalization, Other)
  Sender: FDA-Public Use
  Company Number: GB-AVENTIS-200911108EU

PATIENT
  Age: 63 Year
  Sex: Male

DRUGS (4)
  1. FRUSEMIDE [Suspect]
  2. APROVEL [Suspect]
  3. ASPIRIN [Suspect]
  4. ATORVASTATIN [Suspect]

REACTIONS (1)
  - CORONARY ARTERY BYPASS [None]
